FAERS Safety Report 6738174-X (Version None)
Quarter: 2010Q2

REPORT INFORMATION
  Report Type: 
  Country: None (occurrence: None)
  Receive Date: 20100520
  Receipt Date: 20100506
  Transmission Date: 20101027
  Serious: Yes (Death)
  Sender: FDA-Public Use
  Company Number: 2010SCPR000665

PATIENT
  Age: 67 Year
  Sex: Female

DRUGS (1)
  1. MEGACE ES [Suspect]
     Indication: DECREASED APPETITE
     Dosage: ORAL
     Route: 048
     Dates: start: 20100201

REACTIONS (1)
  - NEOPLASM MALIGNANT [None]
